FAERS Safety Report 16998750 (Version 1)
Quarter: 2019Q4

REPORT INFORMATION
  Report Type: Spontaneous
  Country: US (occurrence: US)
  Receive Date: 20191106
  Receipt Date: 20191106
  Transmission Date: 20200122
  Serious: Yes (Other)
  Sender: FDA-Public Use
  Company Number: US-BEH-2019108827

PATIENT
  Sex: Male

DRUGS (2)
  1. HUMAN IMMUNOGLOBULIN (INN) [Suspect]
     Active Substance: HUMAN IMMUNOGLOBULIN G
     Indication: PRODUCT USED FOR UNKNOWN INDICATION
     Route: 064
  2. CEFOTAXIME [Concomitant]
     Active Substance: CEFOTAXIME SODIUM
     Route: 065

REACTIONS (10)
  - Familial haemophagocytic lymphohistiocytosis [Recovered/Resolved]
  - Transaminases increased [Recovered/Resolved]
  - Hyperferritinaemia [Recovered/Resolved]
  - Pancytopenia [Recovered/Resolved]
  - Neonatal respiratory distress [Unknown]
  - Hepatosplenomegaly [Recovered/Resolved]
  - Pyrexia [Recovered/Resolved]
  - Jaundice [Unknown]
  - Coagulopathy [Recovered/Resolved]
  - Somnolence [Recovered/Resolved]
